FAERS Safety Report 9457969 (Version 1)
Quarter: 2013Q3

REPORT INFORMATION
  Report Type: Spontaneous
  Country: CA (occurrence: CA)
  Receive Date: 20130814
  Receipt Date: 20130814
  Transmission Date: 20140515
  Serious: Yes (Hospitalization)
  Sender: FDA-Public Use
  Company Number: CA-ROCHE-1261447

PATIENT
  Age: 64 Year
  Sex: Female

DRUGS (12)
  1. NAPROXEN [Suspect]
     Indication: PRODUCT USED FOR UNKNOWN INDICATION
     Route: 065
  2. ASA [Suspect]
     Indication: PRODUCT USED FOR UNKNOWN INDICATION
     Route: 065
  3. ADVAIR [Concomitant]
     Route: 065
  4. CHLOROQUINE PHOSPHATE [Concomitant]
     Route: 048
  5. COLACE [Concomitant]
     Route: 065
  6. FERROUS GLUCONATE [Concomitant]
     Route: 065
  7. LASIX [Concomitant]
     Route: 065
  8. LORAZEPAM [Concomitant]
     Route: 048
  9. METHOTREXATE [Concomitant]
     Route: 065
  10. NORTRIPTYLINE [Concomitant]
     Route: 048
  11. VITAMIN B12 [Concomitant]
     Route: 065
  12. VENTOLIN [Concomitant]
     Route: 065

REACTIONS (5)
  - Abdominal pain upper [Unknown]
  - Gastrointestinal haemorrhage [Unknown]
  - Haematocrit decreased [Unknown]
  - Haemoglobin decreased [Unknown]
  - Haemoptysis [Unknown]
